FAERS Safety Report 9644583 (Version 1)
Quarter: 2013Q4

REPORT INFORMATION
  Report Type: Spontaneous
  Country: US (occurrence: US)
  Receive Date: 20131025
  Receipt Date: 20131025
  Transmission Date: 20140711
  Serious: Yes (Other)
  Sender: FDA-Public Use
  Company Number: US-AMGEN-USASP2013075080

PATIENT
  Age: 51 Year
  Sex: Female

DRUGS (1)
  1. ENBREL [Suspect]
     Indication: RHEUMATOID ARTHRITIS
     Dosage: 50 MG, QWK
     Route: 065
     Dates: start: 19990619

REACTIONS (5)
  - Stress fracture [Recovered/Resolved]
  - Fracture nonunion [Recovered/Resolved]
  - Pain [Not Recovered/Not Resolved]
  - Sensory loss [Not Recovered/Not Resolved]
  - Balance disorder [Not Recovered/Not Resolved]
